FAERS Safety Report 5577411-4 (Version None)
Quarter: 2007Q4

REPORT INFORMATION
  Report Type: 
  Country: None (occurrence: None)
  Receive Date: 20071228
  Receipt Date: 20071218
  Transmission Date: 20080405
  Serious: Yes (Disabling)
  Sender: FDA-Public Use
  Company Number: GB-PFIZER INC-2007107461

PATIENT
  Age: 72 Year
  Sex: Male
  Weight: 79 kg

DRUGS (4)
  1. ATORVASTATIN [Suspect]
     Indication: BLOOD CHOLESTEROL INCREASED
     Route: 048
     Dates: start: 20060216, end: 20071012
  2. AMOXICILLIN [Concomitant]
     Route: 048
     Dates: start: 20070904, end: 20071111
  3. IBUPROFEN [Concomitant]
     Route: 048
  4. ITRACONAZOLE [Concomitant]
     Route: 048
     Dates: start: 20070723, end: 20071109

REACTIONS (3)
  - AMNESIA [None]
  - DISTURBANCE IN ATTENTION [None]
  - INSOMNIA [None]
